FAERS Safety Report 16361772 (Version 2)
Quarter: 2019Q3

REPORT INFORMATION
  Report Type: Spontaneous
  Country: AU (occurrence: AU)
  Receive Date: 20190528
  Receipt Date: 20190709
  Transmission Date: 20191004
  Serious: Yes (Hospitalization)
  Sender: FDA-Public Use
  Company Number: AU-MYLANLABS-2017M1050497

PATIENT
  Age: 49 Year
  Sex: Male
  Weight: 54 kg

DRUGS (5)
  1. MOVICOL [Concomitant]
     Active Substance: POLYETHYLENE GLYCOL 3350\POTASSIUM CHLORIDE\SODIUM BICARBONATE\SODIUM CHLORIDE
     Indication: PRODUCT USED FOR UNKNOWN INDICATION
     Dosage: 1 DF, QD
     Route: 048
     Dates: start: 20150713
  2. CLOZARIL [Suspect]
     Active Substance: CLOZAPINE
     Dosage: UNK
     Route: 048
     Dates: end: 201905
  3. CLOZARIL [Suspect]
     Active Substance: CLOZAPINE
     Dosage: 700 MILLIGRAM
     Route: 048
     Dates: start: 20111027
  4. SODIUM VALPROATE [Concomitant]
     Active Substance: VALPROATE SODIUM
     Indication: PRODUCT USED FOR UNKNOWN INDICATION
     Dosage: 200 MG, QD
     Route: 048
     Dates: start: 20150713
  5. CLOZARIL [Suspect]
     Active Substance: CLOZAPINE
     Indication: SCHIZOPHRENIA
     Dosage: 600 MG, QD
     Route: 048
     Dates: start: 20111027

REACTIONS (6)
  - Subdural haemorrhage [Unknown]
  - Unresponsive to stimuli [Unknown]
  - Head injury [Unknown]
  - Mental impairment [Recovering/Resolving]
  - Abnormal behaviour [Unknown]
  - Schizophrenia [Unknown]

NARRATIVE: CASE EVENT DATE: 20150710
